FAERS Safety Report 11285663 (Version 3)
Quarter: 2018Q1

REPORT INFORMATION
  Report Type: Spontaneous
  Country: US (occurrence: US)
  Receive Date: 20150721
  Receipt Date: 20180323
  Transmission Date: 20180508
  Serious: No
  Sender: FDA-Public Use
  Company Number: US-ASTRAZENECA-2015SE66270

PATIENT
  Sex: Male

DRUGS (3)
  1. BYDUREON [Suspect]
     Active Substance: EXENATIDE
     Route: 058
  2. PIOGLITAZONE. [Concomitant]
     Active Substance: PIOGLITAZONE
     Route: 048
  3. METFORMIN [Concomitant]
     Active Substance: METFORMIN HYDROCHLORIDE
     Route: 048

REACTIONS (9)
  - Injection site pain [Unknown]
  - Abnormal dreams [Unknown]
  - Intentional device misuse [Unknown]
  - Poor quality sleep [Unknown]
  - Restlessness [Unknown]
  - Injection site haemorrhage [Unknown]
  - Incorrect dose administered [Unknown]
  - Product quality issue [Unknown]
  - Incorrect disposal of product [Unknown]
